FAERS Safety Report 12311859 (Version 1)
Quarter: 2016Q2

REPORT INFORMATION
  Report Type: Not Available
  Country: None (occurrence: US)
  Receive Date: 20160427
  Receipt Date: 20160427
  Transmission Date: 20160902
  Serious: No
  Sender: FDA-Public Use
  Company Number: US-AKORN-18125

PATIENT
  Age: 63 Year
  Sex: Male

DRUGS (1)
  1. LATANOPROST OPHTHALMIC SOLUTION [Suspect]
     Active Substance: LATANOPROST

REACTIONS (3)
  - Vision blurred [Unknown]
  - Dry eye [Unknown]
  - Headache [Recovered/Resolved]
